FAERS Safety Report 10152882 (Version 3)
Quarter: 2014Q2

REPORT INFORMATION
  Report Type: Report from Study
  Country: US (occurrence: US)
  Receive Date: 20140505
  Receipt Date: 20140512
  Transmission Date: 20141212
  Serious: Yes (Hospitalization)
  Sender: FDA-Public Use
  Company Number: US-SA-2013SA125264

PATIENT
  Age: 29 Year
  Sex: Female

DRUGS (9)
  1. AUBAGIO [Suspect]
     Indication: MULTIPLE SCLEROSIS
     Route: 048
     Dates: start: 20131108, end: 201401
  2. AUBAGIO [Interacting]
     Indication: MULTIPLE SCLEROSIS
     Route: 048
     Dates: start: 20140123, end: 201402
  3. AUBAGIO [Interacting]
     Indication: MULTIPLE SCLEROSIS
     Route: 048
  4. WARFARIN [Interacting]
     Indication: PRODUCT USED FOR UNKNOWN INDICATION
     Route: 065
  5. TYLENOL [Concomitant]
  6. EXCEDRIN [Concomitant]
  7. FOLIC ACID [Concomitant]
     Indication: THROMBOSIS
  8. BENADRYL [Concomitant]
  9. WARFARIN [Concomitant]
     Indication: THROMBOSIS

REACTIONS (11)
  - Asthenia [Not Recovered/Not Resolved]
  - Drug dose omission [Unknown]
  - Multiple sclerosis relapse [Not Recovered/Not Resolved]
  - Movement disorder [Not Recovered/Not Resolved]
  - Gait disturbance [Not Recovered/Not Resolved]
  - Gait disturbance [Not Recovered/Not Resolved]
  - International normalised ratio decreased [Unknown]
  - Drug interaction [Unknown]
  - Hypoaesthesia [Not Recovered/Not Resolved]
  - Rash macular [Unknown]
  - Pain [Not Recovered/Not Resolved]
